FAERS Safety Report 18410236 (Version 3)
Quarter: 2021Q1

REPORT INFORMATION
  Report Type: Report from Study
  Country: US (occurrence: US)
  Receive Date: 20201021
  Receipt Date: 20210122
  Transmission Date: 20210419
  Serious: No
  Sender: FDA-Public Use
  Company Number: US-KYOWAKIRIN-2020BKK016874

PATIENT

DRUGS (1)
  1. POTELIGEO [Suspect]
     Active Substance: MOGAMULIZUMAB-KPKC
     Indication: PRODUCT USED FOR UNKNOWN INDICATION
     Dosage: UNK
     Route: 065

REACTIONS (9)
  - Pruritus [Unknown]
  - Weight increased [Unknown]
  - Vertigo [Unknown]
  - Dizziness [Unknown]
  - Blood test abnormal [Unknown]
  - Rash macular [Unknown]
  - Rash [Unknown]
  - Malaise [Unknown]
  - Dry skin [Unknown]

NARRATIVE: CASE EVENT DATE: 2020
